FAERS Safety Report 23408199 (Version 1)
Quarter: 2024Q1

REPORT INFORMATION
  Report Type: Report from Study
  Country: CA (occurrence: CA)
  Receive Date: 20240117
  Receipt Date: 20240117
  Transmission Date: 20240410
  Serious: Yes (Death)
  Sender: FDA-Public Use
  Company Number: CA-TEVA-VS-3144816

PATIENT
  Age: 85 Year

DRUGS (29)
  1. TERIPARATIDE [Suspect]
     Active Substance: TERIPARATIDE
     Indication: Osteoporosis
     Route: 058
     Dates: start: 20220831, end: 202312
  2. POW Diclofenac Sodium [Concomitant]
     Indication: Pain
     Route: 061
  3. POWD Kedoprofen usp mironised [Concomitant]
     Indication: Pain
     Route: 061
  4. PREDNISONE [Concomitant]
     Active Substance: PREDNISONE
     Route: 065
  5. LEVOFLOXACIN [Concomitant]
     Active Substance: LEVOFLOXACIN
     Dosage: UNTILL ITS FINISHED, COURSE RUNS 7 DAYS
  6. VITAMIN D [Concomitant]
     Active Substance: VITAMIN D NOS
  7. MAGNESIUM [Concomitant]
     Active Substance: MAGNESIUM
     Dosage: USED TO TAKE GUMMIES BUT HAVE BEEN UNAVAILABLE.  USES FIGS INSTEAD  (ERRATIC)
     Route: 065
  8. CIPRALEX [Concomitant]
     Active Substance: ESCITALOPRAM OXALATE
     Indication: Antidepressant therapy
  9. DIAZEPAM [Concomitant]
     Active Substance: DIAZEPAM
     Indication: Panic attack
     Dosage: 5MG ONE OR TWO DAILY NEEDED
     Route: 065
  10. APO CLOPIDOGREL [Concomitant]
     Indication: Anticoagulant therapy
  11. TYLENOL [Concomitant]
     Active Substance: ACETAMINOPHEN
     Dosage: 500 MG  8 TABLETS PER DAY , INCREASED FROM 6 MG
     Route: 065
  12. KETAMIN [Concomitant]
     Active Substance: KETAMINE
     Indication: Pain
     Route: 061
  13. BACLOFEN [Concomitant]
     Active Substance: BACLOFEN
     Indication: Pain
     Route: 061
  14. Cyclobensaprine USP [Concomitant]
     Indication: Pain
     Route: 061
  15. ZOLMITRIPTAN ODT [Concomitant]
     Indication: Migraine
     Dosage: ODT  2.5 MG TAKEN DURING ONSET
     Route: 065
  16. AZITHROMYCIN [Concomitant]
     Active Substance: AZITHROMYCIN
     Indication: Antibiotic therapy
     Route: 065
  17. PROLIA [Concomitant]
     Active Substance: DENOSUMAB
     Indication: Osteoporosis
     Route: 058
     Dates: start: 201310
  18. GABAPENTIN [Concomitant]
     Active Substance: GABAPENTIN
     Indication: Back pain
     Dosage: TIME INTERVAL: 0.33333333 DAYS: 300 MG 2 CAPSULES 3 TIMES DAILY
     Route: 065
  19. TRAMADOL [Concomitant]
     Active Substance: TRAMADOL\TRAMADOL HYDROCHLORIDE
     Indication: Pain
     Route: 061
  20. Arthrotec  Diclofenic [Concomitant]
     Indication: Diabetes mellitus
     Dosage: 50 MG - 200 MCG  ONCE DAILY WITH FOOD
  21. VITAMIN B12 [Concomitant]
     Active Substance: CYANOCOBALAMIN
  22. VITAMIN B1 [Concomitant]
     Active Substance: THIAMINE HYDROCHLORIDE
  23. Ventalin [Concomitant]
     Indication: Chronic obstructive pulmonary disease
     Dosage: 2 PUFFS AS NEEDED ABOUT 4 TIMES PER DAY
  24. Liquid calcium [Concomitant]
  25. Speriva Respomate [Concomitant]
     Indication: Pain
     Route: 061
  26. Mylan Simbastatin [Concomitant]
     Indication: Blood cholesterol
     Dosage: 30 MG ONCE DAILY AT NIGHT
  27. Cloxacillan [Concomitant]
     Indication: Endocarditis
  28. mentol crystal USP [Concomitant]
     Indication: Pain
     Route: 061
  29. BREO ELLIPTA [Concomitant]
     Active Substance: FLUTICASONE FUROATE\VILANTEROL TRIFENATATE
     Indication: Chronic obstructive pulmonary disease
     Dosage: INHALER  2 PUFFS DAILY

REACTIONS (1)
  - Death [Fatal]

NARRATIVE: CASE EVENT DATE: 20231229
